FAERS Safety Report 22640119 (Version 1)
Quarter: 2023Q2

REPORT INFORMATION
  Report Type: Spontaneous
  Country: US (occurrence: None)
  Receive Date: 20230623
  Receipt Date: 20230623
  Transmission Date: 20230722
  Serious: Yes (Other)
  Sender: FDA-Public Use
  Company Number: None

PATIENT
  Age: 72 Year
  Sex: Female

DRUGS (19)
  1. OPSUMIT [Suspect]
     Active Substance: MACITENTAN
     Indication: Pulmonary arterial hypertension
     Dosage: FREQUENCY : DAILY;?
     Route: 048
     Dates: start: 20200827
  2. SILDENAFIL [Concomitant]
     Active Substance: SILDENAFIL
  3. UPTRAVI [Concomitant]
     Active Substance: SELEXIPAG
  4. CEQUA OPHT DROP [Concomitant]
  5. CYANOCOBALAMIN [Concomitant]
     Active Substance: CYANOCOBALAMIN
  6. ATORVASTATIN [Concomitant]
     Active Substance: ATORVASTATIN
  7. ACYCLOVIR [Concomitant]
     Active Substance: ACYCLOVIR
  8. FLONASE [Concomitant]
     Active Substance: FLUTICASONE PROPIONATE
  9. MINERALS\VITAMINS [Concomitant]
     Active Substance: MINERALS\VITAMINS
  10. FISH OIL [Concomitant]
     Active Substance: FISH OIL
  11. IBUPROFEN [Concomitant]
     Active Substance: IBUPROFEN
  12. FERROUS SULFATE [Concomitant]
     Active Substance: FERROUS SULFATE
  13. LISINOPRIL [Concomitant]
     Active Substance: LISINOPRIL
  14. POTASSIUM CHLORIDE [Concomitant]
     Active Substance: POTASSIUM CHLORIDE
  15. OMEPRAZOLE [Concomitant]
     Active Substance: OMEPRAZOLE
  16. BUMETANIDE [Concomitant]
     Active Substance: BUMETANIDE
  17. VITAMIN D3 [Concomitant]
     Active Substance: CHOLECALCIFEROL
  18. MVI WITH MINERALS [Concomitant]
  19. ACETAMINOPHEN [Concomitant]
     Active Substance: ACETAMINOPHEN

REACTIONS (4)
  - Radius fracture [None]
  - Fall [None]
  - Hypoaesthesia [None]
  - Swelling [None]

NARRATIVE: CASE EVENT DATE: 20230608
